FAERS Safety Report 8584664-7 (Version None)
Quarter: 2012Q3

REPORT INFORMATION
  Report Type: 
  Country: None (occurrence: None)
  Receive Date: 20120810
  Receipt Date: 20111107
  Transmission Date: 20120928
  Serious: Yes (Hospitalization)
  Sender: FDA-Public Use
  Company Number: DE-TEVA-301653GER

PATIENT
  Sex: Female
  Weight: 55 kg

DRUGS (2)
  1. METOCLOPRAMIDE [Suspect]
     Route: 048
     Dates: start: 20110920, end: 20110920
  2. ORAL CONTRACEPTIVE NOS [Concomitant]

REACTIONS (7)
  - DYSKINESIA [None]
  - TOOTH FRACTURE [None]
  - ANXIETY [None]
  - MUSCULOSKELETAL STIFFNESS [None]
  - RESTLESSNESS [None]
  - SPEECH DISORDER [None]
  - MUSCLE SPASMS [None]
